FAERS Safety Report 7406066-9 (Version None)
Quarter: 2011Q2

REPORT INFORMATION
  Report Type: 
  Country: None (occurrence: None)
  Receive Date: 20110411
  Receipt Date: 20110330
  Transmission Date: 20111010
  Serious: Yes (Hospitalization)
  Sender: FDA-Public Use
  Company Number: B0710571A

PATIENT
  Age: 43 Year
  Sex: Female
  Weight: 57 kg

DRUGS (1)
  1. ACYCLOVIR [Suspect]
     Indication: HERPES ZOSTER
     Dosage: 2.5G SINGLE DOSE
     Route: 042
     Dates: start: 20100501

REACTIONS (17)
  - RENAL IMPAIRMENT [None]
  - VOMITING [None]
  - FEELING HOT [None]
  - RESTLESSNESS [None]
  - CHEST DISCOMFORT [None]
  - TOXICITY TO VARIOUS AGENTS [None]
  - FATIGUE [None]
  - OVERDOSE [None]
  - PYREXIA [None]
  - ASTHENIA [None]
  - DREAMY STATE [None]
  - OLIGURIA [None]
  - PALPITATIONS [None]
  - NAUSEA [None]
  - DECREASED APPETITE [None]
  - TONGUE COATED [None]
  - BACK PAIN [None]
